FAERS Safety Report 7526294-1 (Version None)
Quarter: 2011Q2

REPORT INFORMATION
  Report Type: 
  Country: None (occurrence: None)
  Receive Date: 20110606
  Receipt Date: 20110117
  Transmission Date: 20111010
  Serious: Yes (Hospitalization, Other)
  Sender: FDA-Public Use
  Company Number: US-BAYER-201035812NA

PATIENT
  Age: 53 Year
  Sex: Female
  Weight: 108.84 kg

DRUGS (9)
  1. YASMIN [Suspect]
     Indication: ORAL CONTRACEPTION
  2. SPIRONOLACTONE [Concomitant]
  3. YASMIN [Suspect]
     Indication: DYSMENORRHOEA
  4. WELLBUTRIN SR [Concomitant]
  5. NSAID'S [Concomitant]
  6. PRAVACHOL [Concomitant]
  7. XANAX [Concomitant]
  8. YASMIN [Suspect]
     Indication: HORMONE REPLACEMENT THERAPY
     Route: 048
     Dates: start: 20020101, end: 20030501
  9. SERZONE [Concomitant]

REACTIONS (3)
  - DEEP VEIN THROMBOSIS [None]
  - SKIN DISCOLOURATION [None]
  - OEDEMA PERIPHERAL [None]
